FAERS Safety Report 18758793 (Version 1)
Quarter: 2021Q1

REPORT INFORMATION
  Report Type: Spontaneous
  Country: US (occurrence: US)
  Receive Date: 20210119
  Receipt Date: 20210119
  Transmission Date: 20210419
  Serious: Yes (Other)
  Sender: FDA-Public Use
  Company Number: US-ELI_LILLY_AND_COMPANY-US202101006696

PATIENT
  Sex: Female

DRUGS (2)
  1. HUMULIN R U?500 [Suspect]
     Active Substance: INSULIN HUMAN
     Indication: TYPE 2 DIABETES MELLITUS
     Dosage: 100 U, BID
     Route: 058
  2. HUMULIN R U?500 [Suspect]
     Active Substance: INSULIN HUMAN
     Dosage: 100 U, BID
     Route: 058

REACTIONS (2)
  - Retinal detachment [Not Recovered/Not Resolved]
  - Blindness unilateral [Not Recovered/Not Resolved]

NARRATIVE: CASE EVENT DATE: 2020
